FAERS Safety Report 10650847 (Version 2)
Quarter: 2014Q4

REPORT INFORMATION
  Report Type: Report from Study
  Country: SE (occurrence: SE)
  Receive Date: 20141215
  Receipt Date: 20141215
  Transmission Date: 20150529
  Serious: Yes (Life-Threatening, Hospitalization)
  Sender: FDA-Public Use
  Company Number: SE-ROCHE-1022763

PATIENT
  Age: 83 Year
  Sex: Male
  Weight: 83 kg

DRUGS (13)
  1. CLOPIDOGREL [Concomitant]
     Active Substance: CLOPIDOGREL BISULFATE
     Indication: PROPHYLAXIS
     Route: 065
     Dates: start: 20111104
  2. FRAGMIN [Concomitant]
     Active Substance: DALTEPARIN SODIUM
     Route: 065
     Dates: start: 20111221, end: 20111226
  3. BENDAMUSTINE [Suspect]
     Active Substance: BENDAMUSTINE
     Indication: NON-HODGKIN^S LYMPHOMA
     Dosage: LAST DOSE ON 04/OCT/2011
     Route: 042
     Dates: start: 20110517
  4. TROMBYL [Concomitant]
     Active Substance: ASPIRIN
     Route: 065
     Dates: start: 20080509
  5. NITROLINGUAL [Concomitant]
     Active Substance: NITROGLYCERIN
     Indication: ANGINA PECTORIS
     Route: 065
     Dates: start: 20110922
  6. FURIX [Concomitant]
     Active Substance: FUROSEMIDE
     Route: 065
     Dates: start: 20111009
  7. ALVEDON [Concomitant]
     Active Substance: ACETAMINOPHEN
     Indication: CHILLS
     Route: 065
     Dates: start: 20111008
  8. KALEROID [Concomitant]
     Route: 065
     Dates: start: 20111028
  9. OBINUTUZUMAB [Suspect]
     Active Substance: OBINUTUZUMAB
     Indication: NON-HODGKIN^S LYMPHOMA
     Dosage: LAST DOSE ON 06/DEC/2011
     Route: 042
     Dates: start: 20110517
  10. RANITIDIN [Concomitant]
     Active Substance: RANITIDINE HYDROCHLORIDE
     Indication: PROPHYLAXIS
     Route: 065
     Dates: start: 20111104
  11. CILAXORAL [Concomitant]
     Indication: CONSTIPATION
     Route: 065
     Dates: start: 20110615
  12. ENALAPRIL [Concomitant]
     Active Substance: ENALAPRIL
     Route: 065
     Dates: start: 20111011
  13. BETNOVAT MED CHINOFORM [Concomitant]
     Route: 065
     Dates: start: 20111206, end: 20120419

REACTIONS (2)
  - Staphylococcal sepsis [Recovered/Resolved]
  - Syncope [Recovered/Resolved]

NARRATIVE: CASE EVENT DATE: 20111215
